FAERS Safety Report 7636988-5 (Version None)
Quarter: 2011Q3

REPORT INFORMATION
  Report Type: 
  Country: None (occurrence: None)
  Receive Date: 20110726
  Receipt Date: 20110711
  Transmission Date: 20111222
  Serious: Yes (Other)
  Sender: FDA-Public Use
  Company Number: US-WATSON-2011-10481

PATIENT
  Sex: Female

DRUGS (5)
  1. GELNIQUE [Suspect]
     Dosage: 1/2 SACHET DAILY (USED FOR A FEW MONTHS)
     Route: 061
     Dates: start: 20110101
  2. GELNIQUE [Suspect]
     Indication: ENURESIS
     Dosage: 1/2 SACHET DAILY (USED FOR A FEW WEEKS)
     Route: 061
     Dates: start: 20110501, end: 20110501
  3. ANTIBIOTICS [Concomitant]
     Indication: URINARY TRACT INFECTION
     Dosage: ^OFF AND ON ANTIBIOTICS, PRN FOR UTI^
     Route: 048
  4. SENOKOT                            /00571901/ [Concomitant]
     Indication: CONSTIPATION
     Dosage: DAILY
     Route: 048
  5. MIRALAX [Concomitant]
     Indication: CONSTIPATION
     Dosage: DAILY
     Route: 048

REACTIONS (3)
  - HALLUCINATION, VISUAL [None]
  - DEHYDRATION [None]
  - OFF LABEL USE [None]
